FAERS Safety Report 12207862 (Version 5)
Quarter: 2019Q1

REPORT INFORMATION
  Report Type: Spontaneous
  Country: US (occurrence: US)
  Receive Date: 20160324
  Receipt Date: 20190318
  Transmission Date: 20190417
  Serious: Yes (Hospitalization)
  Sender: FDA-Public Use
  Company Number: US-ACTELION PHARMACEUTICALS US, INC.-A-US2016-132363

PATIENT
  Sex: Female

DRUGS (6)
  1. UPTRAVI [Suspect]
     Active Substance: SELEXIPAG
     Dosage: 1200 MCG, BID
     Route: 048
  2. UPTRAVI [Suspect]
     Active Substance: SELEXIPAG
     Dosage: 1000 MCG, BID
     Route: 048
  3. UPTRAVI [Suspect]
     Active Substance: SELEXIPAG
     Indication: PULMONARY ARTERIAL HYPERTENSION
     Dosage: 200 MCG, BID
     Route: 048
     Dates: start: 20160202
  4. UPTRAVI [Suspect]
     Active Substance: SELEXIPAG
     Dosage: 800 MCG, BID
     Route: 048
  5. AMBRISENTAN [Suspect]
     Active Substance: AMBRISENTAN
     Indication: PRODUCT USED FOR UNKNOWN INDICATION
     Dosage: 10 MG, QD
     Route: 065
     Dates: start: 20151230
  6. RIOCIGUAT. [Concomitant]
     Active Substance: RIOCIGUAT

REACTIONS (17)
  - Therapy non-responder [Unknown]
  - Arthralgia [Unknown]
  - Fatigue [Unknown]
  - Dry mouth [Unknown]
  - Presyncope [Recovered/Resolved]
  - Ill-defined disorder [Recovered/Resolved]
  - Gait disturbance [Recovered/Resolved]
  - Headache [Unknown]
  - Sinusitis [Unknown]
  - Myalgia [Unknown]
  - Pain in extremity [Unknown]
  - Pain [Recovered/Resolved]
  - Feeling hot [Recovered/Resolved]
  - Nausea [Unknown]
  - Vasodilation procedure [Recovered/Resolved]
  - Decreased appetite [Recovered/Resolved]
  - Pain in jaw [Unknown]
